FAERS Safety Report 17596760 (Version 1)
Quarter: 2020Q1

REPORT INFORMATION
  Report Type: Spontaneous
  Country: NL (occurrence: NL)
  Receive Date: 20200330
  Receipt Date: 20200330
  Transmission Date: 20200409
  Serious: Yes (Other)
  Sender: FDA-Public Use
  Company Number: NL-TEVA-2020-NL-1212423

PATIENT
  Sex: Female

DRUGS (3)
  1. ORAAL ANTIDIABETICUM [Concomitant]
     Dosage: PALM PSORIASIS (DO NOT KNOW WHICH, VIA GP, UP TO ABOUT 2 MONTHS IN PREGNANCY) ARIS WITH FISSURES
     Route: 048
  2. ACITRETINE [Suspect]
     Active Substance: ACITRETIN
     Indication: PSORIASIS
     Dosage: 1X PER DAY 2 PIECE:20 MILLIGRAM
     Route: 065
  3. INSULINE [Concomitant]
     Active Substance: INSULIN NOS
     Dosage: (I DON^T KNOW, VIA OTHER INTERNAL HOSPITAL)

REACTIONS (2)
  - Maternal exposure during pregnancy [Unknown]
  - Foetal death [Unknown]
